FAERS Safety Report 7776489-7 (Version None)
Quarter: 2011Q3

REPORT INFORMATION
  Report Type: 
  Country: None (occurrence: None)
  Receive Date: 20110922
  Receipt Date: 20110922
  Transmission Date: 20111222
  Serious: No
  Sender: FDA-Public Use
  Company Number: None

PATIENT
  Sex: Male

DRUGS (1)
  1. METHYLPHENIDATE HCL [Suspect]
     Indication: ATTENTION DEFICIT/HYPERACTIVITY DISORDER
     Dosage: 36MG DAILY PO
     Route: 048
     Dates: start: 20110701, end: 20110801

REACTIONS (6)
  - PSYCHOMOTOR HYPERACTIVITY [None]
  - CONDITION AGGRAVATED [None]
  - PRODUCT SUBSTITUTION ISSUE [None]
  - IMPULSIVE BEHAVIOUR [None]
  - DISTURBANCE IN ATTENTION [None]
  - TREATMENT FAILURE [None]
